FAERS Safety Report 8937143 (Version 2)
Quarter: 2013Q2

REPORT INFORMATION
  Report Type: Spontaneous
  Country: GB (occurrence: None)
  Receive Date: 20121123
  Receipt Date: 20130401
  Transmission Date: 20140414
  Serious: Yes (Death, Hospitalization)
  Sender: FDA-Public Use
  Company Number: 2012AP004009

PATIENT
  Age: 70 Year
  Sex: Female

DRUGS (3)
  1. RISPERIDONE (RISPERIDONE) [Suspect]
     Indication: PRODUCT USED FOR UNKNOWN INDICATION
  2. DIAZEPAM (DIAZEPAM) [Suspect]
     Indication: DEMENTIA
  3. MIRTAZAPINE [Suspect]
     Indication: DEMENTIA

REACTIONS (15)
  - Bedridden [None]
  - Catatonia [None]
  - Cholecystitis [None]
  - Coma [None]
  - Dehydration [None]
  - Drug interaction [None]
  - Pyrexia [None]
  - Neuroleptic malignant syndrome [None]
  - Sedation [None]
  - Paralysis [None]
  - Muscle rigidity [None]
  - Swelling face [None]
  - Aphagia [None]
  - Urinary tract infection [None]
  - Local swelling [None]
